FAERS Safety Report 4444699-2 (Version None)
Quarter: 2004Q3

REPORT INFORMATION
  Report Type: 
  Country: None (occurrence: None)
  Receive Date: 20040902
  Receipt Date: 20040820
  Transmission Date: 20050211
  Serious: Yes (Death)
  Sender: FDA-Public Use
  Company Number: MC200400303

PATIENT
  Age: 52 Year
  Sex: Female

DRUGS (5)
  1. ANGIOMAX [Suspect]
     Dosage: 14 ML, BOLUS, IV BOLUS; INTRAVENOUS
     Route: 040
     Dates: start: 20040819
  2. ANGIOMAX [Suspect]
     Dosage: 14 ML, BOLUS, IV BOLUS; INTRAVENOUS
     Route: 040
     Dates: start: 20040819
  3. INTEGRILIN [Concomitant]
  4. HEPARIN [Concomitant]
  5. PLAVIX [Concomitant]

REACTIONS (4)
  - CARDIAC PROCEDURE COMPLICATION [None]
  - CORONARY ARTERY THROMBOSIS [None]
  - HEPARIN-INDUCED THROMBOCYTOPENIA [None]
  - PLATELET COUNT DECREASED [None]
